FAERS Safety Report 24217612 (Version 1)
Quarter: 2024Q3

REPORT INFORMATION
  Report Type: Spontaneous
  Country: US (occurrence: None)
  Receive Date: 20240815
  Receipt Date: 20240815
  Transmission Date: 20241016
  Serious: Yes (Life-Threatening, Hospitalization, Disabling, Other)
  Sender: Public
  Company Number: None

PATIENT
  Age: 52 Year
  Sex: Female
  Weight: 88.65 kg

DRUGS (1)
  1. LAMICTAL [Suspect]
     Active Substance: LAMOTRIGINE
     Indication: Bipolar II disorder
     Dates: start: 20221003, end: 20221123

REACTIONS (4)
  - Stevens-Johnson syndrome [None]
  - Post-traumatic stress disorder [None]
  - Dry eye [None]
  - Dry skin [None]

NARRATIVE: CASE EVENT DATE: 20221124
